FAERS Safety Report 11234726 (Version 3)
Quarter: 2015Q3

REPORT INFORMATION
  Report Type: Spontaneous
  Country: FR (occurrence: FR)
  Receive Date: 20150702
  Receipt Date: 20150729
  Transmission Date: 20151125
  Serious: Yes (Hospitalization)
  Sender: FDA-Public Use
  Company Number: FR-PFIZER INC-2015148538

PATIENT
  Age: 85 Year
  Sex: Male

DRUGS (14)
  1. ZYLORIC [Concomitant]
     Active Substance: ALLOPURINOL
     Dosage: 1 DF, 1X/DAY
     Route: 048
     Dates: start: 20140919, end: 20141201
  2. TRANXENE T-TAB [Concomitant]
     Active Substance: CLORAZEPATE DIPOTASSIUM
     Dosage: 10 MG, 1X/DAY
     Route: 048
  3. HEMIGOXINE NATIVELLE [Concomitant]
     Active Substance: DIGOXIN
     Dosage: 1 DF, ALTERNATE DAY
     Route: 048
  4. DISCOTRINE [Concomitant]
     Active Substance: NITROGLYCERIN
     Dosage: 1 DF, 1X/DAY
     Route: 062
  5. XARELTO [Interacting]
     Active Substance: RIVAROXABAN
     Indication: PULMONARY EMBOLISM
     Dosage: 2 DF, 2X/DAY
     Route: 048
     Dates: start: 20140919, end: 20141013
  6. LASILIX SPECIAL [Interacting]
     Active Substance: FUROSEMIDE
     Dosage: 0.5 DF, 2X/DAY
     Route: 048
     Dates: end: 20141013
  7. LANTUS [Concomitant]
     Active Substance: INSULIN GLARGINE
     Dosage: 6 IU, 1X/DAY
     Route: 058
  8. ALDACTONE [Suspect]
     Active Substance: SPIRONOLACTONE
     Dosage: 1 DF, DAILY
     Route: 048
     Dates: end: 20141013
  9. COLCHICINE/OPIUM/TIEMONIUM [Concomitant]
     Dosage: 1 DF, 1X/DAY
     Route: 048
     Dates: start: 20140919, end: 20141201
  10. IMOVANE [Concomitant]
     Active Substance: ZOPICLONE
     Dosage: 7.5 MG, 1X/DAY
     Route: 048
  11. RAMIPRIL. [Interacting]
     Active Substance: RAMIPRIL
     Dosage: 5 MG, 2X/DAY
     Route: 048
     Dates: end: 20141013
  12. REPAGLINIDE. [Concomitant]
     Active Substance: REPAGLINIDE
     Dosage: 2 MG IN THE MORNING AND EVENING + 1 MG AT NOON
     Route: 048
  13. KARDEGIC [Interacting]
     Active Substance: ASPIRIN LYSINE
     Dosage: 300 MG, 1X/DAY
     Route: 048
     Dates: end: 20140919
  14. KARDEGIC [Interacting]
     Active Substance: ASPIRIN LYSINE
     Dosage: 75 MG, 1X/DAY
     Route: 048
     Dates: start: 20140919, end: 20141013

REACTIONS (2)
  - Drug interaction [Recovered/Resolved]
  - Acute prerenal failure [Recovered/Resolved]

NARRATIVE: CASE EVENT DATE: 20141012
